FAERS Safety Report 13296968 (Version 1)
Quarter: 2017Q1

REPORT INFORMATION
  Report Type: Spontaneous
  Country: JP (occurrence: JP)
  Receive Date: 20170306
  Receipt Date: 20170306
  Transmission Date: 20170428
  Serious: Yes (Life-Threatening, Other)
  Sender: FDA-Public Use
  Company Number: JP-ACCORD-048843

PATIENT
  Age: 31 Year
  Sex: Male
  Weight: 42.6 kg

DRUGS (2)
  1. CISPLATIN. [Suspect]
     Active Substance: CISPLATIN
     Indication: MEDIASTINUM NEOPLASM
  2. ETOPOSIDE. [Suspect]
     Active Substance: ETOPOSIDE
     Indication: MEDIASTINUM NEOPLASM
     Dosage: DOSES ESCALATED FROM THE THIRD?TO THE FIFTH CYCLES: ETOPOSIDE TO 75MG/M2

REACTIONS (4)
  - Appendicitis [Unknown]
  - Neutropenia [Unknown]
  - Anaemia [Unknown]
  - Thrombocytopenia [Unknown]
